FAERS Safety Report 24450008 (Version 1)
Quarter: 2024Q4

REPORT INFORMATION
  Report Type: Spontaneous
  Country: GH (occurrence: GH)
  Receive Date: 20241017
  Receipt Date: 20241017
  Transmission Date: 20250114
  Serious: Yes (Life-Threatening, Hospitalization, Disabling)
  Sender: STRIDES
  Company Number: None

PATIENT
  Age: 57 Year
  Sex: Male

DRUGS (4)
  1. PREDNISOLONE [Suspect]
     Active Substance: PREDNISOLONE
     Indication: Immunosuppressant drug therapy
     Dosage: 10 MG DAILY
     Route: 048
  2. TACROLIMUS [Suspect]
     Active Substance: TACROLIMUS
     Indication: Immunosuppressant drug therapy
     Dosage: 5 MG EVERY MORNING OR 4.5 MG EVERY EVENING
     Route: 048
  3. TACROLIMUS [Suspect]
     Active Substance: TACROLIMUS
     Dosage: 5 MG EVERY MORNING OR 4.5 MG EVERY EVENING
     Route: 048
  4. MYCOPHENOLIC ACID [Suspect]
     Active Substance: MYCOPHENOLIC ACID
     Indication: Immunosuppressant drug therapy
     Dosage: 720 MG TWICE DAILY
     Route: 065

REACTIONS (6)
  - Facial paralysis [Recovering/Resolving]
  - Hemiparesis [Unknown]
  - Endocarditis enterococcal [Recovering/Resolving]
  - Septic embolus [Recovering/Resolving]
  - Brain abscess [Recovering/Resolving]
  - Generalised tonic-clonic seizure [Recovering/Resolving]
